FAERS Safety Report 9275849 (Version 4)
Quarter: 2014Q3

REPORT INFORMATION
  Report Type: Spontaneous
  Country: US (occurrence: US)
  Receive Date: 20130507
  Receipt Date: 20140825
  Transmission Date: 20150326
  Serious: No
  Sender: FDA-Public Use
  Company Number: US-009507513-1305USA001686

PATIENT
  Sex: Male
  Weight: 71.66 kg

DRUGS (1)
  1. PROPECIA [Suspect]
     Active Substance: FINASTERIDE
     Indication: ANDROGENETIC ALOPECIA
     Dosage: 1 MG, UNK
     Route: 048
     Dates: start: 20031126, end: 20051228

REACTIONS (15)
  - Drug ineffective [Unknown]
  - Anxiety [Not Recovered/Not Resolved]
  - Depression [Not Recovered/Not Resolved]
  - Pleuritic pain [Unknown]
  - Insomnia [Unknown]
  - Blood prolactin increased [Unknown]
  - Conjunctivitis [Recovering/Resolving]
  - Sexual dysfunction [Not Recovered/Not Resolved]
  - Hypertension [Unknown]
  - Spinal pain [Unknown]
  - Anxiety [Unknown]
  - Libido decreased [Unknown]
  - Prehypertension [Unknown]
  - Erectile dysfunction [Not Recovered/Not Resolved]
  - Infertility [Unknown]

NARRATIVE: CASE EVENT DATE: 2004
